FAERS Safety Report 10090988 (Version 2)
Quarter: 2014Q2

REPORT INFORMATION
  Report Type: Report from Study
  Country: US (occurrence: US)
  Receive Date: 20140421
  Receipt Date: 20140505
  Transmission Date: 20141212
  Serious: No
  Sender: FDA-Public Use
  Company Number: PHEH2014US007583

PATIENT
  Sex: Female

DRUGS (10)
  1. MYFORTIC [Suspect]
     Indication: RENAL TRANSPLANT
     Dosage: 180 MG, BID
     Route: 048
     Dates: start: 2009
  2. PREVACID 24HR 15MG [Suspect]
     Dosage: UNK
  3. VIT D3 [Suspect]
     Dosage: UNK
  4. TACROLIMUS [Concomitant]
     Dosage: UNK
  5. PREDNISONE [Concomitant]
     Dosage: UNK
  6. LOPRESSOR [Concomitant]
     Dosage: UNK
  7. LIPITOR [Concomitant]
     Dosage: UNK
  8. BACTRIM [Concomitant]
     Dosage: UNK
  9. MULTIVITAMIN [Concomitant]
     Dosage: UNK
  10. COLACE [Concomitant]
     Dosage: UNK

REACTIONS (2)
  - Diabetes mellitus [Unknown]
  - Drug ineffective [Unknown]
